FAERS Safety Report 21193502 (Version 1)
Quarter: 2022Q3

REPORT INFORMATION
  Report Type: Spontaneous
  Country: US (occurrence: US)
  Receive Date: 20220810
  Receipt Date: 20220810
  Transmission Date: 20221026
  Serious: Yes (Life-Threatening, Hospitalization, Other)
  Sender: FDA-Public Use
  Company Number: US-MLMSERVICE-20220722-3691306-1

PATIENT
  Sex: Male

DRUGS (4)
  1. PREDNISONE [Suspect]
     Active Substance: PREDNISONE
     Indication: Sarcoidosis
     Dosage: DOSE TAPER
     Route: 048
     Dates: start: 2020
  2. PREDNISONE [Suspect]
     Active Substance: PREDNISONE
     Route: 048
     Dates: end: 2020
  3. METHYLPREDNISOLONE [Suspect]
     Active Substance: METHYLPREDNISOLONE
     Indication: Sarcoidosis
     Dosage: ADDITIONAL PARENTERAL STEROIDS HIGH-DOSE
     Route: 051
     Dates: start: 2020
  4. METHYLPREDNISOLONE [Suspect]
     Active Substance: METHYLPREDNISOLONE
     Dosage: PARENTERAL HIGH-DOSE
     Route: 051
     Dates: start: 202006

REACTIONS (8)
  - Pulmonary blastomycosis [Recovering/Resolving]
  - Osteomyelitis blastomyces [Recovering/Resolving]
  - Infection [Recovering/Resolving]
  - Renal impairment [Unknown]
  - Blastomycosis [Recovering/Resolving]
  - Encephalopathy [Unknown]
  - Infection masked [Recovered/Resolved]
  - Disseminated blastomycosis [Recovering/Resolving]

NARRATIVE: CASE EVENT DATE: 20200101
